FAERS Safety Report 17986262 (Version 2)
Quarter: 2020Q3

REPORT INFORMATION
  Report Type: Report from Study
  Country: None (occurrence: FR)
  Receive Date: 20200707
  Receipt Date: 20200723
  Transmission Date: 20201103
  Serious: Yes (Other)
  Sender: FDA-Public Use
  Company Number: FR-ABBVIE-20K-056-3455211-00

PATIENT
  Age: 79 Year
  Sex: Male

DRUGS (1)
  1. DUODOPA [Suspect]
     Active Substance: CARBIDOPA\LEVODOPA
     Indication: PARKINSON^S DISEASE
     Dosage: MORNING DOSE: 10 ML; CONTINUOUS DOSE: 3.8 ML/H FROM 7H00 TO?20H30; EXTRA DOSE: 3ML
     Route: 050
     Dates: start: 20200617

REACTIONS (4)
  - Pneumoperitoneum [Unknown]
  - Off label use [Unknown]
  - Intentional medical device removal by patient [Unknown]
  - Unintentional medical device removal [Unknown]

NARRATIVE: CASE EVENT DATE: 202006
